FAERS Safety Report 25813721 (Version 2)
Quarter: 2025Q4

REPORT INFORMATION
  Report Type: Spontaneous
  Country: US (occurrence: US)
  Receive Date: 20250917
  Receipt Date: 20251007
  Transmission Date: 20260118
  Serious: Yes (Other)
  Sender: BAYER HEALTHCARE PHARMACEUTICALS INC.
  Company Number: US-BAYER-2025A120116

PATIENT
  Age: 27 Year
  Sex: Male

DRUGS (4)
  1. JIVI [Suspect]
     Active Substance: DAMOCTOCOG ALFA PEGOL
     Dosage: JIVI 3929IU~INFUSED:4000 UN
     Route: 042
  2. JIVI [Suspect]
     Active Substance: DAMOCTOCOG ALFA PEGOL
     Dosage: 2 DF
     Route: 042
  3. JIVI [Suspect]
     Active Substance: DAMOCTOCOG ALFA PEGOL
     Dosage: 4000 IU-INFUSED 546/3209 UN
     Route: 042
  4. JIVI [Suspect]
     Active Substance: DAMOCTOCOG ALFA PEGOL
     Dosage: 1 UNK-INFUSED 1 DOSE OF FACTOR
     Route: 042

REACTIONS (6)
  - Haemarthrosis [Recovering/Resolving]
  - Extra dose administered [None]
  - Wrong technique in product usage process [None]
  - Tooth extraction [None]
  - Gait inability [Recovering/Resolving]
  - Product dose omission issue [None]

NARRATIVE: CASE EVENT DATE: 20250830
